FAERS Safety Report 5192681-2 (Version None)
Quarter: 2006Q4

REPORT INFORMATION
  Report Type: 
  Country: None (occurrence: None)
  Receive Date: 20061220
  Receipt Date: 20061212
  Transmission Date: 20070319
  Serious: Yes (Hospitalization)
  Sender: FDA-Public Use
  Company Number: 232527

PATIENT
  Age: 32 Year
  Sex: Female
  Weight: 77 kg

DRUGS (10)
  1. BEVACIZUMAB OR PLACEBO(BEVACIZUMAB) PWDR + SOLVENT,INFUSION SOLN, 100M [Suspect]
     Indication: PANCREATIC CARCINOMA METASTATIC
     Dosage: 10 MG/KG, Q4W, INTRAVENOUS
     Route: 042
     Dates: start: 20051115, end: 20060918
  2. GEMCITABINE [Suspect]
     Indication: PANCREATIC CARCINOMA METASTATIC
     Dosage: 1000 MG/M2, Q4W, INTRAVENOUS
     Route: 042
     Dates: start: 20051115, end: 20060821
  3. FUROSEMIDE [Concomitant]
  4. SPIRONOLACTONE [Concomitant]
  5. DURAGESIC-100 [Concomitant]
  6. OXYCODONE HCL [Concomitant]
  7. XANAX [Concomitant]
  8. ARANESP [Concomitant]
  9. ASPIRIN [Concomitant]
  10. MULTIVITAMIN (MULTIVITAMINS NOS) [Concomitant]

REACTIONS (14)
  - ASTHENIA [None]
  - BLOOD PRESSURE INCREASED [None]
  - BODY TEMPERATURE INCREASED [None]
  - CATHETER RELATED COMPLICATION [None]
  - DIALYSIS [None]
  - DYSPNOEA [None]
  - HAEMOLYTIC URAEMIC SYNDROME [None]
  - HYPERTENSION [None]
  - JUGULAR VEIN THROMBOSIS [None]
  - MALIGNANT ASCITES [None]
  - MALIGNANT PLEURAL EFFUSION [None]
  - NAUSEA [None]
  - PERITONEAL EFFUSION [None]
  - VOMITING [None]
